FAERS Safety Report 9669812 (Version 2)
Quarter: 2013Q4

REPORT INFORMATION
  Report Type: Spontaneous
  Country: US (occurrence: US)
  Receive Date: 20131105
  Receipt Date: 20131120
  Transmission Date: 20140711
  Serious: Yes (Hospitalization)
  Sender: FDA-Public Use
  Company Number: US-BAYER-2013-134647

PATIENT
  Age: 17 Year
  Sex: Female

DRUGS (3)
  1. YASMIN [Suspect]
  2. ACCUTANE [Concomitant]
     Dosage: 40 MG, UNK
     Route: 048
  3. AZITHROMYCIN [Concomitant]
     Indication: UPPER RESPIRATORY TRACT INFECTION

REACTIONS (2)
  - Pelvic venous thrombosis [Recovered/Resolved]
  - Deep vein thrombosis [None]
